FAERS Safety Report 6666991-3 (Version None)
Quarter: 2010Q2

REPORT INFORMATION
  Report Type: 
  Country: None (occurrence: None)
  Receive Date: 20100405
  Receipt Date: 20100325
  Transmission Date: 20101027
  Serious: Yes (Hospitalization, Other)
  Sender: FDA-Public Use
  Company Number: PHHY2010US05961

PATIENT
  Sex: Female
  Weight: 125.17 kg

DRUGS (14)
  1. EXJADE [Suspect]
     Indication: CHRONIC LYMPHOCYTIC LEUKAEMIA
     Dosage: 1500 MG DAILY
     Route: 048
     Dates: start: 20100201
  2. NEXIUM [Concomitant]
  3. INSULIN [Concomitant]
  4. CYTOXAN [Concomitant]
  5. MIRALAX [Concomitant]
  6. LANTUS [Concomitant]
  7. SERTRALINE HCL [Concomitant]
  8. COLCHICINE [Concomitant]
  9. DIOVAN [Concomitant]
  10. ACYCLOVIR [Concomitant]
  11. SAXAGLIPTIN [Concomitant]
  12. BACTRIM [Concomitant]
  13. PROCHLORPERAZINE [Concomitant]
  14. ONGLYZA [Concomitant]

REACTIONS (7)
  - CONSTIPATION [None]
  - DIARRHOEA [None]
  - MUSCLE SPASMS [None]
  - NAUSEA [None]
  - PERICARDIAL EFFUSION [None]
  - PLEURAL EFFUSION [None]
  - SPLENOMEGALY [None]
